FAERS Safety Report 8310270-5 (Version None)
Quarter: 2012Q2

REPORT INFORMATION
  Report Type: 
  Country: None (occurrence: None)
  Receive Date: 20120425
  Receipt Date: 20120416
  Transmission Date: 20120825
  Serious: Yes (Other)
  Sender: FDA-Public Use
  Company Number: US-ASTRAZENECA-2012SE25002

PATIENT
  Age: 52 Year
  Sex: Female

DRUGS (1)
  1. SEROQUEL [Suspect]
     Route: 048

REACTIONS (12)
  - CONVULSION [None]
  - DEPRESSION [None]
  - OBESITY [None]
  - URINARY RETENTION [None]
  - CROHN'S DISEASE [None]
  - ANXIETY [None]
  - GLAUCOMA [None]
  - FEAR [None]
  - FIBROMYALGIA [None]
  - HYPOTHYROIDISM [None]
  - IMPAIRED WORK ABILITY [None]
  - BENIGN INTRACRANIAL HYPERTENSION [None]
